FAERS Safety Report 4488298-5 (Version None)
Quarter: 2004Q4

REPORT INFORMATION
  Report Type: 
  Country: None (occurrence: None)
  Receive Date: 20041026
  Receipt Date: 20041020
  Transmission Date: 20050328
  Serious: Yes (Hospitalization, Other)
  Sender: FDA-Public Use
  Company Number: USA-2004-0017339

PATIENT
  Age: 45 Year
  Sex: Male

DRUGS (7)
  1. OXYCODONE HCL [Suspect]
  2. MORPHINE SULFATE [Suspect]
  3. VALIUM [Suspect]
  4. MARIJUANA (CANNABIS) [Suspect]
  5. LIDOCAINE [Suspect]
  6. TYLENOL [Suspect]
  7. HYDROCODONE(HYDROCODONE) [Suspect]

REACTIONS (4)
  - HEAD INJURY [None]
  - POISONING [None]
  - POLYSUBSTANCE ABUSE [None]
  - ROAD TRAFFIC ACCIDENT [None]
